FAERS Safety Report 23305380 (Version 4)
Quarter: 2024Q1

REPORT INFORMATION
  Report Type: Spontaneous
  Country: GB (occurrence: GB)
  Receive Date: 20231218
  Receipt Date: 20240328
  Transmission Date: 20240410
  Serious: Yes (Death, Life-Threatening, Hospitalization, Other)
  Sender: FDA-Public Use
  Company Number: GB-MHRA-ADR 28373356

PATIENT
  Sex: Female

DRUGS (2)
  1. TRAMADOL [Suspect]
     Active Substance: TRAMADOL\TRAMADOL HYDROCHLORIDE
     Indication: Back pain
     Dosage: UNK ( FURTHER PRESCRIPTION ISSUED 15 DAYS LATER)
     Route: 065
     Dates: start: 20201220
  2. WARFARIN [Suspect]
     Active Substance: WARFARIN
     Indication: Anticoagulant therapy
     Dosage: UNK
     Route: 065

REACTIONS (8)
  - Cerebral haemorrhage [Fatal]
  - Malaise [Fatal]
  - International normalised ratio increased [Fatal]
  - Drug interaction [Fatal]
  - Condition aggravated [Fatal]
  - Subarachnoid haemorrhage [Fatal]
  - Pyelonephritis [Unknown]
  - Labelled drug-drug interaction medication error [Unknown]

NARRATIVE: CASE EVENT DATE: 20210108
